FAERS Safety Report 18688181 (Version 5)
Quarter: 2021Q3

REPORT INFORMATION
  Report Type: Report from Study
  Country: DE (occurrence: DE)
  Receive Date: 20201231
  Receipt Date: 20210723
  Transmission Date: 20211014
  Serious: Yes (Other)
  Sender: FDA-Public Use
  Company Number: DE-PUMA BIOTECHNOLOGY, LTD.-2020DE008559

PATIENT

DRUGS (3)
  1. NERATINIB [Suspect]
     Active Substance: NERATINIB
     Indication: BREAST CANCER
     Dosage: 160 MG, QD (1/DAY)
     Route: 048
  2. NERATINIB [Suspect]
     Active Substance: NERATINIB
     Dosage: 450 MG, QD (1/DAY)
     Route: 048
  3. NERATINIB [Suspect]
     Active Substance: NERATINIB
     Dosage: 240 MG, QD (1/DAY)
     Route: 048

REACTIONS (5)
  - Off label use [Unknown]
  - Polyneuropathy [Not Recovered/Not Resolved]
  - Condition aggravated [Not Recovered/Not Resolved]
  - Diarrhoea [Recovered/Resolved]
  - Prescribed underdose [Unknown]

NARRATIVE: CASE EVENT DATE: 20201010
